FAERS Safety Report 21751398 (Version 1)
Quarter: 2022Q4

REPORT INFORMATION
  Report Type: Spontaneous
  Country: US (occurrence: US)
  Receive Date: 20221220
  Receipt Date: 20221220
  Transmission Date: 20230113
  Serious: No
  Sender: FDA-Public Use
  Company Number: US-AUROBINDO-AUR-APL-2022-011737

PATIENT
  Age: 43 Year
  Sex: Male

DRUGS (4)
  1. AMOXICILLIN [Suspect]
     Active Substance: AMOXICILLIN
     Indication: Postoperative care
     Dosage: UNK
     Route: 065
  2. LENVIMA [Suspect]
     Active Substance: LENVATINIB
     Indication: Renal cancer
     Dosage: 10 MILLIGRAM,(DAILY) ONCE A DAY
     Route: 048
     Dates: start: 20220113, end: 20220212
  3. LENVIMA [Suspect]
     Active Substance: LENVATINIB
     Dosage: UNK
     Dates: start: 20220213
  4. KEYTRUDA [Concomitant]
     Active Substance: PEMBROLIZUMAB
     Indication: Product used for unknown indication
     Dosage: UNK
     Route: 065

REACTIONS (3)
  - Rash [Recovered/Resolved]
  - Fatigue [Unknown]
  - Glossodynia [Unknown]

NARRATIVE: CASE EVENT DATE: 20220201
